FAERS Safety Report 5755662-3 (Version None)
Quarter: 2008Q2

REPORT INFORMATION
  Report Type: 
  Country: None (occurrence: None)
  Receive Date: 20080602
  Receipt Date: 20080414
  Transmission Date: 20081010
  Serious: Yes (Death, Life-Threatening)
  Sender: FDA-Public Use
  Company Number: US-BAYER-200512999BWH

PATIENT
  Age: 65 Year
  Sex: Male

DRUGS (6)
  1. TRASYLOL [Suspect]
     Indication: AORTIC ANEURYSM REPAIR
     Dosage: TOTAL DAILY DOSE: 1 ML  UNIT DOSE: 10000 KIU
     Route: 042
     Dates: start: 20051201, end: 20051201
  2. PANCURONIUM [Concomitant]
  3. FENTANYL-100 [Concomitant]
  4. MIDAZOLAM HCL [Concomitant]
  5. ISOFLURANE [Concomitant]
  6. OXYGEN [Concomitant]

REACTIONS (8)
  - ANAPHYLACTIC REACTION [None]
  - BRADYCARDIA [None]
  - CARDIAC FAILURE CONGESTIVE [None]
  - DISSEMINATED INTRAVASCULAR COAGULATION [None]
  - HAEMORRHAGE [None]
  - HYPOTENSION [None]
  - SUPRAVENTRICULAR TACHYCARDIA [None]
  - VENTRICULAR FIBRILLATION [None]
